FAERS Safety Report 13954464 (Version 1)
Quarter: 2017Q3

REPORT INFORMATION
  Report Type: Spontaneous
  Country: US (occurrence: US)
  Receive Date: 20170909
  Receipt Date: 20170909
  Transmission Date: 20171128
  Serious: Yes (Hospitalization, Other)
  Sender: FDA-Public Use
  Company Number: None

PATIENT
  Age: 36 Year
  Sex: Female
  Weight: 130.5 kg

DRUGS (1)
  1. CIPROFLAXIN [Suspect]
     Active Substance: CIPROFLOXACIN
     Indication: PNEUMONIA
     Dosage: ?          QUANTITY:1 TABLET(S);?EVERY 12 HOURS ORAL
     Route: 048
     Dates: start: 20150508, end: 20150510

REACTIONS (2)
  - Pain [None]
  - Acute kidney injury [None]

NARRATIVE: CASE EVENT DATE: 20150511
